FAERS Safety Report 9207760 (Version 2)
Quarter: 2013Q2

REPORT INFORMATION
  Report Type: Spontaneous
  Country: IT (occurrence: IT)
  Receive Date: 20130403
  Receipt Date: 20130521
  Transmission Date: 20140414
  Serious: Yes (Other)
  Sender: FDA-Public Use
  Company Number: IT-BRISTOL-MYERS SQUIBB COMPANY-18719252

PATIENT
  Age: 66 Year
  Sex: Female

DRUGS (3)
  1. ERBITUX [Suspect]
     Indication: COLON CANCER METASTATIC
     Route: 042
     Dates: start: 20130206, end: 20130213
  2. OXALIPLATIN [Concomitant]
     Indication: COLON CANCER METASTATIC
     Route: 042
     Dates: start: 20130130, end: 20130306
  3. CAPECITABINE [Concomitant]
     Indication: COLON CANCER METASTATIC
     Route: 048
     Dates: start: 20130130, end: 20130306

REACTIONS (1)
  - Breast necrosis [Recovered/Resolved]
